FAERS Safety Report 19850188 (Version 1)
Quarter: 2021Q3

REPORT INFORMATION
  Report Type: Report from Study
  Country: US (occurrence: US)
  Receive Date: 20210917
  Receipt Date: 20210917
  Transmission Date: 20211014
  Serious: Yes (Hospitalization, Other)
  Sender: FDA-Public Use
  Company Number: US-TAKEDA-2021TUS041099

PATIENT
  Sex: Female
  Weight: 34 kg

DRUGS (2)
  1. HUMAN NORMAL IMMUNOGLOBULIN; LIQUID [Suspect]
     Active Substance: HUMAN IMMUNOGLOBULIN G
     Indication: PRIMARY IMMUNODEFICIENCY SYNDROME
     Dosage: UNK UNK, 1/WEEK
     Route: 058
  2. CUVITRU [Suspect]
     Active Substance: HUMAN IMMUNOGLOBULIN G
     Indication: PRIMARY IMMUNODEFICIENCY SYNDROME
     Dosage: UNK UNK, WEEKLY INFUSIONS
     Route: 058

REACTIONS (6)
  - Tooth disorder [Not Recovered/Not Resolved]
  - Transient ischaemic attack [Not Recovered/Not Resolved]
  - Hernia [Not Recovered/Not Resolved]
  - Underweight [Not Recovered/Not Resolved]
  - Hospitalisation [Unknown]
  - Dizziness [Not Recovered/Not Resolved]
